FAERS Safety Report 9316572 (Version 1)
Quarter: 2013Q2

REPORT INFORMATION
  Report Type: Spontaneous
  Country: US (occurrence: US)
  Receive Date: 20130530
  Receipt Date: 20130530
  Transmission Date: 20140414
  Serious: No
  Sender: FDA-Public Use
  Company Number: US-PFIZER INC-2013162330

PATIENT
  Sex: Female

DRUGS (4)
  1. HYDROXYZINE PAMOATE [Suspect]
     Indication: ANXIETY
     Dosage: 25 UNK, UNK
  2. HYDROXYZINE PAMOATE [Suspect]
     Indication: INSOMNIA
  3. VISTARIL [Suspect]
     Indication: ANXIETY
     Dosage: 25 MG, UNK
  4. VISTARIL [Suspect]
     Indication: INSOMNIA

REACTIONS (2)
  - Fatigue [Unknown]
  - Drug ineffective [Unknown]
